FAERS Safety Report 8997397 (Version 1)
Quarter: 2013Q1

REPORT INFORMATION
  Report Type: Spontaneous
  Country: KR (occurrence: KR)
  Receive Date: 20130104
  Receipt Date: 20130104
  Transmission Date: 20140127
  Serious: Yes (Hospitalization)
  Sender: FDA-Public Use
  Company Number: KR-BAXTER-2012BAX029433

PATIENT
  Age: 36 Year
  Sex: Male
  Weight: 68 kg

DRUGS (7)
  1. DIANEAL PD-2 [Suspect]
     Indication: PERITONEAL DIALYSIS
     Route: 033
     Dates: start: 20121226
  2. DIANEAL PD-2 [Suspect]
     Indication: RENAL FAILURE CHRONIC
  3. EXTRANEAL [Suspect]
     Indication: PERITONEAL DIALYSIS
     Route: 033
     Dates: start: 20121220
  4. EXTRANEAL [Suspect]
     Indication: RENAL FAILURE CHRONIC
  5. PHYSIONEAL [Suspect]
     Indication: PERITONEAL DIALYSIS
     Route: 033
     Dates: start: 20121220, end: 20121226
  6. PHYSIONEAL [Suspect]
     Indication: RENAL FAILURE CHRONIC
  7. HUMALOG MIX [Concomitant]
     Indication: DIABETES MELLITUS
     Dosage: 26 UNIT
     Route: 058

REACTIONS (2)
  - Oedema [Recovering/Resolving]
  - Blood pressure increased [Not Recovered/Not Resolved]
